FAERS Safety Report 12797867 (Version 1)
Quarter: 2016Q3

REPORT INFORMATION
  Report Type: Spontaneous
  Country: US (occurrence: US)
  Receive Date: 20160929
  Receipt Date: 20160929
  Transmission Date: 20161109
  Serious: Yes (Life-Threatening)
  Sender: FDA-Public Use
  Company Number: None

PATIENT
  Age: 91 Year
  Sex: Female
  Weight: 67.5 kg

DRUGS (6)
  1. COCONUT OIL TABLETS [Concomitant]
  2. METOPROLOL. [Concomitant]
     Active Substance: METOPROLOL
  3. SUBLINGUAL LIQUID [Concomitant]
  4. VITAMIN B12 COMPLEX [Concomitant]
  5. COLLAGEN [Concomitant]
     Active Substance: COLLAGEN
  6. DULCOLAX NOS [Suspect]
     Active Substance: BISACODYL OR DOCUSATE SODIUM
     Indication: CONSTIPATION
     Dosage: ?          QUANTITY:1 TABLET(S);?
     Route: 048

REACTIONS (7)
  - Tremor [None]
  - Abdominal pain [None]
  - Asthenia [None]
  - Syncope [None]
  - Dyspnoea [None]
  - Nausea [None]
  - Apparent death [None]

NARRATIVE: CASE EVENT DATE: 20160905
